FAERS Safety Report 9570761 (Version 1)
Quarter: 2013Q3

REPORT INFORMATION
  Report Type: Spontaneous
  Country: US (occurrence: None)
  Receive Date: 20130926
  Receipt Date: 20130926
  Transmission Date: 20140515
  Serious: Yes (Disabling)
  Sender: FDA-Public Use
  Company Number: None

PATIENT
  Age: 52 Year
  Sex: Male
  Weight: 90.72 kg

DRUGS (1)
  1. TEQUIN [Suspect]
     Indication: DERMATITIS ALLERGIC
     Dosage: 10 PILLS ONCE DAILY TAKEN BY MOUTH

REACTIONS (3)
  - Arthralgia [None]
  - Tendon rupture [None]
  - Gait disturbance [None]
